FAERS Safety Report 15285871 (Version 1)
Quarter: 2018Q3

REPORT INFORMATION
  Report Type: Spontaneous
  Country: US (occurrence: US)
  Receive Date: 20180816
  Receipt Date: 20180816
  Transmission Date: 20181010
  Serious: Yes (Life-Threatening, Hospitalization)
  Sender: FDA-Public Use
  Company Number: US-TEVA-2018-US-943470

PATIENT
  Age: 33 Year
  Sex: Male

DRUGS (1)
  1. GABAPENTIN. [Suspect]
     Active Substance: GABAPENTIN
     Dosage: RECEIVED 7 TABLETS
     Route: 065

REACTIONS (7)
  - Bradypnoea [Recovering/Resolving]
  - Drug abuse [Recovering/Resolving]
  - Depressed level of consciousness [Recovering/Resolving]
  - Pulmonary oedema [Unknown]
  - Drug interaction [Recovering/Resolving]
  - Somnolence [Unknown]
  - Hypoxia [Recovering/Resolving]
